FAERS Safety Report 19781853 (Version 1)
Quarter: 2021Q3

REPORT INFORMATION
  Report Type: Spontaneous
  Country: US (occurrence: US)
  Receive Date: 20210902
  Receipt Date: 20210902
  Transmission Date: 20211014
  Serious: No
  Sender: FDA-Public Use
  Company Number: US-ENDO PHARMACEUTICALS INC-2021-001065

PATIENT
  Age: 66 Year
  Sex: Male

DRUGS (4)
  1. MONTELUKAST [Concomitant]
     Active Substance: MONTELUKAST SODIUM
     Indication: HYPERSENSITIVITY
  2. PREDNISONE. [Suspect]
     Active Substance: PREDNISONE
     Indication: NASAL POLYPS
     Dosage: 6 DF, DAILY (2 TABS IN AM, 1 AT NOON, 1 AT DINNER, 2 AT BEDTIME)
     Dates: start: 20210206, end: 20210206
  3. NASAL SPRAY [Concomitant]
     Active Substance: UNSPECIFIED INGREDIENT
     Indication: PRODUCT USED FOR UNKNOWN INDICATION
  4. HIGH BLOOD PRESSURE [Concomitant]
     Indication: HYPERTENSION

REACTIONS (4)
  - Fall [Recovered/Resolved]
  - Dysstasia [Recovered/Resolved]
  - Off label use [Recovered/Resolved]
  - Asthenia [Recovered/Resolved]

NARRATIVE: CASE EVENT DATE: 20210206
